FAERS Safety Report 17051971 (Version 2)
Quarter: 2020Q1

REPORT INFORMATION
  Report Type: Spontaneous
  Country: GB (occurrence: GB)
  Receive Date: 20191120
  Receipt Date: 20200127
  Transmission Date: 20200409
  Serious: Yes (Other)
  Sender: FDA-Public Use
  Company Number: GB-SA-2019SA317986

PATIENT
  Sex: Male

DRUGS (1)
  1. AUBAGIO [Suspect]
     Active Substance: TERIFLUNOMIDE
     Indication: RELAPSING-REMITTING MULTIPLE SCLEROSIS
     Dosage: 14 MG, QD
     Dates: start: 201907

REACTIONS (1)
  - Erectile dysfunction [Not Recovered/Not Resolved]

NARRATIVE: CASE EVENT DATE: 2019
